FAERS Safety Report 15430568 (Version 1)
Quarter: 2018Q3

REPORT INFORMATION
  Report Type: Spontaneous
  Country: US (occurrence: US)
  Receive Date: 20180921
  Receipt Date: 20180921
  Transmission Date: 20181010
  Serious: No
  Sender: FDA-Public Use
  Company Number: None

PATIENT
  Age: 56 Year
  Sex: Female

DRUGS (1)
  1. TECHNETIUM TC?99M MEDRONATE [Suspect]
     Active Substance: TECHNETIUM TC-99M MEDRONATE
     Indication: FRACTURE
     Route: 042
     Dates: start: 20180920, end: 20180920

REACTIONS (1)
  - Pruritus [None]

NARRATIVE: CASE EVENT DATE: 20180920
